FAERS Safety Report 21107626 (Version 4)
Quarter: 2022Q4

REPORT INFORMATION
  Report Type: Report from Study
  Country: CN (occurrence: CN)
  Receive Date: 20220720
  Receipt Date: 20221019
  Transmission Date: 20230113
  Serious: Yes (Hospitalization)
  Sender: FDA-Public Use
  Company Number: CN-DSJP-DSE-2021-142756

PATIENT
  Age: 50 Year
  Sex: Male
  Weight: 68 kg

DRUGS (7)
  1. EDOXABAN [Suspect]
     Active Substance: EDOXABAN
     Indication: Atrial fibrillation
     Dosage: 60 MG, QD
     Route: 048
     Dates: start: 20210527, end: 20220515
  2. AMIODARONE [Suspect]
     Active Substance: AMIODARONE
     Indication: Atrial fibrillation
     Dosage: 0.2 G, QD
     Dates: start: 20191221, end: 20220517
  3. BISOPROLOL FUMARATE [Suspect]
     Active Substance: BISOPROLOL FUMARATE
     Indication: Atrial fibrillation
     Dosage: UNK, QD
     Dates: start: 20211006, end: 20220515
  4. UNSPECIFIED INGREDIENT [Concomitant]
     Active Substance: UNSPECIFIED INGREDIENT
     Indication: Dyslipidaemia
     Dosage: UNK
     Route: 065
  5. ROSUVASTATIN CALCIUM [Concomitant]
     Active Substance: ROSUVASTATIN CALCIUM
     Indication: Hyperlipidaemia
     Dosage: 5 MG, QD
     Route: 048
     Dates: start: 20190401, end: 20220426
  6. FLUNARIZINE HYDROCHLORIDE [Concomitant]
     Active Substance: FLUNARIZINE HYDROCHLORIDE
     Indication: Dizziness
     Dosage: 5 MG, QD
     Route: 048
     Dates: start: 20201223
  7. BETAHISTINE MESILATE [Concomitant]
     Active Substance: BETAHISTINE MESILATE
     Indication: Dizziness
     Dosage: 6 MG, TID
     Route: 048
     Dates: start: 20210623

REACTIONS (8)
  - Cerebral hypoperfusion [Recovering/Resolving]
  - Gastritis [Recovered/Resolved]
  - Gastritis [Recovering/Resolving]
  - Occult blood [Not Recovered/Not Resolved]
  - Drug hypersensitivity [Recovered/Resolved]
  - Intervertebral disc protrusion [Not Recovered/Not Resolved]
  - Pulmonary mass [Not Recovered/Not Resolved]
  - Hypertension [Not Recovered/Not Resolved]

NARRATIVE: CASE EVENT DATE: 20211215
